FAERS Safety Report 26213058 (Version 1)
Quarter: 2025Q4

REPORT INFORMATION
  Report Type: Spontaneous
  Country: US (occurrence: US)
  Receive Date: 20251230
  Receipt Date: 20251230
  Transmission Date: 20260117
  Serious: No
  Sender: DAIICHI
  Company Number: US-DAIICHI SANKYO, INC.-DS-2025-186024-USAA

PATIENT
  Sex: Female
  Weight: 65 kg

DRUGS (1)
  1. DATROWAY [Suspect]
     Active Substance: DATOPOTAMAB DERUXTECAN-DLNK
     Indication: Product used for unknown indication
     Dosage: 100MG/5ML
     Route: 042
     Dates: start: 20251125

REACTIONS (1)
  - Weight decreased [Unknown]
